FAERS Safety Report 25099849 (Version 3)
Quarter: 2025Q3

REPORT INFORMATION
  Report Type: Report from Study
  Country: EU (occurrence: EU)
  Receive Date: 20250320
  Receipt Date: 20250818
  Transmission Date: 20251021
  Serious: Yes (Death)
  Sender: CSL BEHRING
  Company Number: EU-BEH-2025199546

PATIENT
  Age: 8 Decade
  Sex: Female

DRUGS (4)
  1. VELTASSA [Suspect]
     Active Substance: PATIROMER
     Indication: Hyperkalaemia
     Route: 065
     Dates: start: 20211203, end: 20221016
  2. AMLODIPINE [Concomitant]
     Active Substance: AMLODIPINE BESYLATE
  3. FUROSEMIDE [Concomitant]
     Active Substance: FUROSEMIDE
  4. Resina benzoe [Concomitant]

REACTIONS (1)
  - Death [Fatal]

NARRATIVE: CASE EVENT DATE: 20221016
